FAERS Safety Report 18388247 (Version 5)
Quarter: 2020Q4

REPORT INFORMATION
  Report Type: Spontaneous
  Country: US (occurrence: US)
  Receive Date: 20201015
  Receipt Date: 20201224
  Transmission Date: 20210114
  Serious: Yes (Disabling, Other)
  Sender: FDA-Public Use
  Company Number: NVSC2020US276899

PATIENT
  Age: 84 Year
  Sex: Male
  Weight: 74.9 kg

DRUGS (5)
  1. BEOVU [Suspect]
     Active Substance: BROLUCIZUMAB-DBLL
     Dosage: UNK
     Route: 065
     Dates: start: 20200518
  2. BEOVU [Suspect]
     Active Substance: BROLUCIZUMAB-DBLL
     Dosage: UNK
     Route: 065
     Dates: start: 20200805
  3. BEOVU [Suspect]
     Active Substance: BROLUCIZUMAB-DBLL
     Dosage: UNK
     Route: 065
     Dates: start: 20201007
  4. BEOVU [Suspect]
     Active Substance: BROLUCIZUMAB-DBLL
     Dosage: UNK, Q2MO (EVERY 8 WEEKS)
     Route: 031
     Dates: start: 20201013
  5. BEOVU [Suspect]
     Active Substance: BROLUCIZUMAB-DBLL
     Indication: NEOVASCULAR AGE-RELATED MACULAR DEGENERATION
     Dosage: 6 MG
     Route: 047
     Dates: start: 20191120

REACTIONS (7)
  - Iridocyclitis [Recovered/Resolved]
  - Lacrimation increased [Unknown]
  - Retinal haemorrhage [Recovered/Resolved]
  - Non-infectious endophthalmitis [Recovering/Resolving]
  - Blindness transient [Recovering/Resolving]
  - Hypopyon [Unknown]
  - Eye pain [Unknown]

NARRATIVE: CASE EVENT DATE: 20201010
